FAERS Safety Report 8791996 (Version 2)
Quarter: 2012Q4

REPORT INFORMATION
  Report Type: 
  Country: US (occurrence: US)
  Receive Date: 20120918
  Receipt Date: 20121102
  Transmission Date: 20130627
  Serious: Yes (Other)
  Sender: FDA-Public Use
  Company Number: US-ASTELLAS-2012US007722

PATIENT
  Age: 60 Year
  Sex: Male

DRUGS (3)
  1. VESICARE [Suspect]
     Indication: PRODUCT USED FOR UNKNOWN INDICATION
     Dosage: 5 mg, Unknown/D
     Route: 048
     Dates: start: 2012, end: 2012
  2. NEURONTIN [Suspect]
     Indication: PRODUCT USED FOR UNKNOWN INDICATION
     Dosage: 4800 mg, UID/QD
     Route: 065
     Dates: start: 2012
  3. OTHER MEDICATIONS [Suspect]
     Indication: PRODUCT USED FOR UNKNOWN INDICATION
     Dosage: UNK
     Route: 065

REACTIONS (8)
  - Accidental overdose [Recovered/Resolved]
  - Treatment noncompliance [Recovered/Resolved]
  - Agitation [Recovered/Resolved]
  - Adverse reaction [Recovered/Resolved]
  - Amnesia [Recovered/Resolved]
  - Aggression [Recovered/Resolved]
  - Abnormal behaviour [Recovered/Resolved]
  - Hallucination [Recovered/Resolved]
